FAERS Safety Report 5763803-7 (Version None)
Quarter: 2008Q2

REPORT INFORMATION
  Report Type: 
  Country: None (occurrence: None)
  Receive Date: 20080606
  Receipt Date: 20080606
  Transmission Date: 20081010
  Serious: Yes (Hospitalization)
  Sender: FDA-Public Use
  Company Number: None

PATIENT
  Age: 73 Year
  Sex: Male
  Weight: 74.3 kg

DRUGS (2)
  1. WARFARIN SODIUM [Suspect]
     Indication: ANTICOAGULANT THERAPY
     Dosage: 7.5 MG EVERY DAY PO
     Route: 048
     Dates: start: 20080407, end: 20080414
  2. WARFARIN SODIUM [Suspect]
     Indication: SURGERY
     Dosage: 7.5 MG EVERY DAY PO
     Route: 048
     Dates: start: 20080407, end: 20080414

REACTIONS (1)
  - INTERNATIONAL NORMALISED RATIO INCREASED [None]
